FAERS Safety Report 25165592 (Version 1)
Quarter: 2025Q2

REPORT INFORMATION
  Report Type: Report from Study
  Country: BR (occurrence: BR)
  Receive Date: 20250407
  Receipt Date: 20250407
  Transmission Date: 20250716
  Serious: Yes (Other)
  Sender: ABBVIE
  Company Number: BR-ABBVIE-6207949

PATIENT
  Age: 42 Year
  Sex: Female

DRUGS (4)
  1. BOTOX [Suspect]
     Active Substance: ONABOTULINUMTOXINA
     Indication: Headache
     Route: 065
     Dates: start: 202412, end: 202412
  2. BOTOX [Suspect]
     Active Substance: ONABOTULINUMTOXINA
     Indication: Headache
     Route: 065
     Dates: start: 202403, end: 202403
  3. PREGABALIN [Concomitant]
     Active Substance: PREGABALIN
     Indication: Headache
     Dosage: 75MG IN THE MORNING 150MG AT NIGHT
     Route: 048
     Dates: start: 202501
  4. GABAPENTIN [Concomitant]
     Active Substance: GABAPENTIN
     Indication: Headache
     Route: 048
     Dates: start: 20250322

REACTIONS (4)
  - Pulpless tooth [Recovered/Resolved]
  - Off label use [Unknown]
  - Off label use [Recovered/Resolved]
  - Oral bacterial infection [Recovered/Resolved]

NARRATIVE: CASE EVENT DATE: 20240301
